FAERS Safety Report 10266024 (Version 1)
Quarter: 2014Q2

REPORT INFORMATION
  Report Type: Report from Study
  Country: US (occurrence: US)
  Receive Date: 20140627
  Receipt Date: 20140627
  Transmission Date: 20141212
  Serious: Yes (Hospitalization)
  Sender: FDA-Public Use
  Company Number: US-009507513-1406USA012550

PATIENT
  Age: 59 Year
  Sex: Female
  Weight: 76.4 kg

DRUGS (5)
  1. VORINOSTAT [Suspect]
     Dosage: 500 MG, TID
     Dates: start: 20140509, end: 20140511
  2. CYTARABINE [Suspect]
     Indication: ACUTE MYELOID LEUKAEMIA
     Dosage: 1500 MG/M2/DAY CONTINUOUS ON DAYS 4-7, CYCLE 1
     Route: 042
     Dates: start: 20140310, end: 20140313
  3. CYTARABINE [Suspect]
     Dosage: 750 MG/M2/DAY CONTINUOUS, ON DAYS 4-6, CYCLE 3
     Route: 042
     Dates: start: 20140512, end: 20140515
  4. IDARUBICIN [Suspect]
     Indication: ACUTE MYELOID LEUKAEMIA
     Dosage: 12MG/M2/DAY IV OVER 15 MIN ON DAYS 4-6, CYCLE 1
     Route: 042
     Dates: start: 20140310, end: 20140312
  5. IDARUBICIN [Suspect]
     Dosage: 8MG/M2/DAY IV OVER 15 MIN ON DAYS 4-5, CYCLE 3
     Route: 042
     Dates: start: 20140512, end: 20140513

REACTIONS (1)
  - Cholecystitis [Recovered/Resolved]
